FAERS Safety Report 20910768 (Version 3)
Quarter: 2022Q2

REPORT INFORMATION
  Report Type: Spontaneous
  Country: US (occurrence: US)
  Receive Date: 20220603
  Receipt Date: 20220629
  Transmission Date: 20220721
  Serious: No
  Sender: FDA-Public Use
  Company Number: US-BAYER-2022A078159

PATIENT
  Age: 61 Year
  Sex: Female

DRUGS (1)
  1. CLIMARA PRO [Suspect]
     Active Substance: ESTRADIOL\LEVONORGESTREL
     Indication: Hot flush
     Dosage: UNK
     Route: 062

REACTIONS (7)
  - Application site hypersensitivity [None]
  - Application site rash [None]
  - Application site discomfort [None]
  - Application site urticaria [None]
  - Application site irritation [None]
  - Application site erythema [None]
  - Application site pruritus [None]
